FAERS Safety Report 15229787 (Version 2)
Quarter: 2018Q3

REPORT INFORMATION
  Report Type: Spontaneous
  Country: US (occurrence: US)
  Receive Date: 20180802
  Receipt Date: 20180831
  Transmission Date: 20181010
  Serious: No
  Sender: FDA-Public Use
  Company Number: US-009507513-1807USA001931

PATIENT
  Age: 79 Year
  Sex: Male

DRUGS (2)
  1. DULERA [Suspect]
     Active Substance: FORMOTEROL FUMARATE DIHYDRATE\MOMETASONE FUROATE
     Indication: RESPIRATORY TRACT IRRITATION
     Dosage: 2 PUFFS AM AND 2 PUFFS PM
     Route: 055
  2. DULERA [Suspect]
     Active Substance: FORMOTEROL FUMARATE DIHYDRATE\MOMETASONE FUROATE
     Indication: ASTHMA

REACTIONS (5)
  - Product label issue [Unknown]
  - Product use issue [Unknown]
  - Skin atrophy [Not Recovered/Not Resolved]
  - Product quality issue [Unknown]
  - Cough [Recovered/Resolved]

NARRATIVE: CASE EVENT DATE: 20180619
